FAERS Safety Report 8345819-X (Version None)
Quarter: 2012Q2

REPORT INFORMATION
  Report Type: 
  Country: None (occurrence: None)
  Receive Date: 20120509
  Receipt Date: 20120427
  Transmission Date: 20120825
  Serious: Yes (Hospitalization, Other)
  Sender: FDA-Public Use
  Company Number: JP-AMGEN-JPNSP2012026927

PATIENT
  Age: 65 Year
  Sex: Female

DRUGS (3)
  1. ENBREL [Suspect]
     Indication: RHEUMATOID ARTHRITIS
     Dosage: 50 MG, FREQUENCY UNKNOWN
     Route: 058
     Dates: end: 20120401
  2. PREDNISOLONE [Suspect]
     Dosage: UNK
  3. RHEUMATREX [Suspect]
     Dosage: UNK

REACTIONS (2)
  - PNEUMONIA PNEUMOCOCCAL [None]
  - PLEURISY [None]
